FAERS Safety Report 7380932-5 (Version None)
Quarter: 2011Q1

REPORT INFORMATION
  Report Type: 
  Country: None (occurrence: None)
  Receive Date: 20110329
  Receipt Date: 20091204
  Transmission Date: 20110831
  Serious: Yes (Death)
  Sender: FDA-Public Use
  Company Number: US-BAYER-200839175NA

PATIENT
  Sex: Female
  Weight: 76 kg

DRUGS (65)
  1. OPTIMARK [Suspect]
     Indication: NUCLEAR MAGNETIC RESONANCE IMAGING
     Dates: start: 20040611, end: 20040611
  2. IRON SUPPLEMENT [Concomitant]
     Indication: ANAEMIA
  3. PROCRIT [Concomitant]
  4. VALIUM [Concomitant]
  5. PREVACID [Concomitant]
  6. MAGNEVIST [Suspect]
     Indication: NUCLEAR MAGNETIC RESONANCE IMAGING BRAIN
     Dates: start: 20041023, end: 20041023
  7. OMNISCAN [Suspect]
     Indication: NUCLEAR MAGNETIC RESONANCE IMAGING BRAIN
     Dates: start: 20001221, end: 20001221
  8. LEXAPRO [Concomitant]
  9. NORVASC [Concomitant]
  10. PLAVIX [Concomitant]
  11. PROTONIX [Concomitant]
  12. DILAUDID [Concomitant]
  13. CATAPRES [Concomitant]
  14. COMBIVENT [Concomitant]
  15. OXYGEN [Concomitant]
     Indication: CHRONIC OBSTRUCTIVE PULMONARY DISEASE
  16. VASOTEC [Concomitant]
  17. LIPITOR [Concomitant]
  18. ZEMPLAR [Concomitant]
  19. METOPROLOL TARTRATE [Concomitant]
  20. PHOSLO [Concomitant]
  21. INSULIN [Concomitant]
  22. ANTIVERT [Concomitant]
  23. FOLIC ACID [Concomitant]
  24. LOPRESSOR [Concomitant]
  25. IMDUR [Concomitant]
  26. MAGNEVIST [Suspect]
     Dosage: UNK
     Dates: start: 20010130, end: 20010130
  27. HUMALOG [Concomitant]
     Indication: DIABETES MELLITUS
  28. OXYCODONE [Concomitant]
     Indication: PAIN
  29. REGLAN [Concomitant]
  30. ELAVIL [Concomitant]
  31. DURAGESIC-50 [Concomitant]
  32. NYSTATIN [Concomitant]
  33. LONITEN [Concomitant]
  34. DULCOLAX [Concomitant]
  35. PHENERGAN HCL [Concomitant]
  36. ALBUTEROL [Concomitant]
  37. LANTUS [Concomitant]
  38. NORCO [Concomitant]
  39. CLONAZEPAM [Concomitant]
  40. QUININE SULFATE [Concomitant]
  41. ATROVENT [Concomitant]
  42. MAGNEVIST [Suspect]
     Dosage: UNK
     Dates: start: 20041024, end: 20041024
  43. COUMADIN [Concomitant]
  44. COREG [Concomitant]
  45. ATACAND [Concomitant]
  46. LISINOPRIL [Concomitant]
  47. FLEXERIL [Concomitant]
  48. IRON SULFATETHIAMIN COMPOUND TAB [Concomitant]
  49. ANTIBIOTICS [Concomitant]
  50. ZOLOFT [Concomitant]
  51. AMBIEN [Concomitant]
  52. ISORDIL [Concomitant]
  53. ALU-CAP [Concomitant]
  54. NEURONTIN [Concomitant]
  55. MYLANTA [ALUMINIUM HYDROXIDE GEL, DRIED,MAGNESIUM HYDROXIDE,SIMETICONE [Concomitant]
  56. RENAGEL [Concomitant]
  57. COZAAR [Concomitant]
  58. NITROGLYCERIN [Concomitant]
  59. LANOXIN [Concomitant]
  60. VENOFER [Concomitant]
  61. ARANESP [Concomitant]
  62. HYDRALAZINE HCL [Concomitant]
  63. NEPHROVITE [VIT C,VIT H,B5,B12,B9,B3,B6,B2,B1 HCL] [Concomitant]
  64. ZESTRIL [Concomitant]
  65. XANAX [Concomitant]

REACTIONS (23)
  - RASH MACULAR [None]
  - CHEST PAIN [None]
  - ACTIVITIES OF DAILY LIVING IMPAIRED [None]
  - SKIN EXFOLIATION [None]
  - PAIN OF SKIN [None]
  - SKIN TIGHTNESS [None]
  - PAIN [None]
  - EMOTIONAL DISTRESS [None]
  - SCAR [None]
  - DRY SKIN [None]
  - HYPOAESTHESIA [None]
  - NEPHROGENIC SYSTEMIC FIBROSIS [None]
  - JOINT STIFFNESS [None]
  - OEDEMA PERIPHERAL [None]
  - ANXIETY [None]
  - SKIN HYPERTROPHY [None]
  - JOINT CONTRACTURE [None]
  - SKIN DISCOLOURATION [None]
  - PARALYSIS [None]
  - ANHEDONIA [None]
  - MOBILITY DECREASED [None]
  - SKIN WARM [None]
  - MUSCULAR WEAKNESS [None]
